FAERS Safety Report 11444938 (Version 3)
Quarter: 2017Q3

REPORT INFORMATION
  Report Type: Report from Study
  Country: BR (occurrence: BR)
  Receive Date: 20150902
  Receipt Date: 20170727
  Transmission Date: 20171127
  Serious: Yes (Hospitalization)
  Sender: FDA-Public Use
  Company Number: PHHY2015BR105482

PATIENT
  Sex: Male
  Weight: 45 kg

DRUGS (5)
  1. EXJADE [Suspect]
     Active Substance: DEFERASIROX
     Indication: SICKLE CELL ANAEMIA
     Dosage: 1375 MG (2 TABLETS OF 500 MG, 1 TABLET OF 250 MG AND 1 TABLET OF 125 MG), UNK
     Route: 065
     Dates: start: 201207
  2. ACIDO FOLICO//FOLIC ACID [Concomitant]
     Active Substance: FOLIC ACID
     Indication: RED BLOOD CELL ABNORMALITY
     Dosage: 1 DF, UNK
     Route: 065
  3. PEN-VE-ORAL [Concomitant]
     Active Substance: PENICILLIN V POTASSIUM
     Indication: PROPHYLAXIS
     Dosage: 4000 OT, QD
     Route: 065
  4. HYDREA [Concomitant]
     Active Substance: HYDROXYUREA
     Indication: PROPHYLAXIS
     Dosage: 1 DF, QD
     Route: 065
  5. BENZETACIL [Concomitant]
     Indication: PROPHYLAXIS
     Dosage: 1 DF, EVERY 21 DAYS
     Route: 030

REACTIONS (8)
  - Full blood count decreased [Unknown]
  - Back pain [Not Recovered/Not Resolved]
  - Diarrhoea [Unknown]
  - Bone pain [Not Recovered/Not Resolved]
  - Sensitivity to weather change [Unknown]
  - Sickle cell anaemia with crisis [Recovering/Resolving]
  - Pain in extremity [Unknown]
  - Tremor [Unknown]
